FAERS Safety Report 15035558 (Version 1)
Quarter: 2018Q2

REPORT INFORMATION
  Report Type: Report from Study
  Country: DE (occurrence: DE)
  Receive Date: 20180620
  Receipt Date: 20180620
  Transmission Date: 20180711
  Serious: Yes (Other)
  Sender: FDA-Public Use
  Company Number: DE-MYLANLABS-2018M1038896

PATIENT

DRUGS (2)
  1. VIMPAT [Suspect]
     Active Substance: LACOSAMIDE
     Indication: SEIZURE
     Dosage: 400 MG, QD (200 MG IN MORNING AND THE EVENINGS)
  2. LEVETIRACETAM. [Suspect]
     Active Substance: LEVETIRACETAM
     Indication: SEIZURE
     Dosage: 4000 MG, QD (2000 MG IN THE MORNING 2000MG IN THE EVENING)

REACTIONS (6)
  - Intentional overdose [Unknown]
  - Drug effect incomplete [Unknown]
  - Clumsiness [Unknown]
  - Memory impairment [Unknown]
  - Daydreaming [Unknown]
  - Adverse drug reaction [Unknown]
